FAERS Safety Report 10137555 (Version 1)
Quarter: 2014Q2

REPORT INFORMATION
  Report Type: Spontaneous
  Country: US (occurrence: US)
  Receive Date: 20140429
  Receipt Date: 20140429
  Transmission Date: 20141212
  Serious: Yes (Hospitalization)
  Sender: FDA-Public Use
  Company Number: US-BAYER-2014-059729

PATIENT
  Age: 27 Year
  Sex: Female
  Weight: 69.1 kg

DRUGS (4)
  1. YASMIN [Suspect]
     Route: 048
  2. CATAFLAM [Concomitant]
  3. DARVOCET [Concomitant]
  4. CIPROFLOXACIN [Concomitant]
     Indication: CYSTITIS

REACTIONS (2)
  - Pelvic venous thrombosis [Recovered/Resolved]
  - Deep vein thrombosis [Recovered/Resolved]
